FAERS Safety Report 4519796-3 (Version None)
Quarter: 2004Q4

REPORT INFORMATION
  Report Type: 
  Country: None (occurrence: None)
  Receive Date: 20041202
  Receipt Date: 20041202
  Transmission Date: 20050328
  Serious: Yes (Hospitalization)
  Sender: FDA-Public Use
  Company Number: None

PATIENT
  Sex: Male
  Weight: 87.0906 kg

DRUGS (6)
  1. ESTRASMUSTINE 140 MG [Suspect]
     Indication: PROSTATE CANCER
     Dosage: 140 MG BID (2X DAILY DAYS 1-5 WEEKS 1-3)
     Dates: start: 20040720
  2. ESTRASMUSTINE 140 MG [Suspect]
     Indication: PROSTATE CANCER
     Dosage: 140 MG BID (2X DAILY DAYS 1-5 WEEKS 1-3)
     Dates: start: 20040727
  3. ESTRASMUSTINE 140 MG [Suspect]
     Indication: PROSTATE CANCER
     Dosage: 140 MG BID (2X DAILY DAYS 1-5 WEEKS 1-3)
     Dates: start: 20040803
  4. DOCETAXEL [Suspect]
     Dosage: DOCETAXEL 85MG IV WEEK 1-3
     Route: 042
     Dates: start: 20040721
  5. DOCETAXEL [Suspect]
     Dosage: DOCETAXEL 85MG IV WEEK 1-3
     Route: 042
     Dates: start: 20040728
  6. DOCETAXEL [Suspect]
     Dosage: DOCETAXEL 85MG IV WEEK 1-3
     Route: 042
     Dates: start: 20040804

REACTIONS (8)
  - ARTHRALGIA [None]
  - BONE PAIN [None]
  - CANCER PAIN [None]
  - DEHYDRATION [None]
  - HALLUCINATION [None]
  - LIVER FUNCTION TEST ABNORMAL [None]
  - NAUSEA [None]
  - VOMITING [None]
